FAERS Safety Report 11713853 (Version 1)
Quarter: 2015Q4

REPORT INFORMATION
  Report Type: Spontaneous
  Country: US (occurrence: None)
  Receive Date: 20151106
  Receipt Date: 20151106
  Transmission Date: 20160304
  Serious: Yes (Hospitalization)
  Sender: FDA-Public Use
  Company Number: None

PATIENT
  Age: 52 Year
  Sex: Female
  Weight: 102.97 kg

DRUGS (2)
  1. LISINOPRIL AND HYDROCHLOROTHIAZIDE [Suspect]
     Active Substance: HYDROCHLOROTHIAZIDE\LISINOPRIL
     Indication: HYPERTENSION
     Dosage: 1 PILL
     Route: 048
     Dates: start: 20150921, end: 20151026
  2. METHIMAZOLE. [Concomitant]
     Active Substance: METHIMAZOLE

REACTIONS (4)
  - Cough [None]
  - Dyspnoea [None]
  - Drug hypersensitivity [None]
  - Pericardial effusion [None]

NARRATIVE: CASE EVENT DATE: 20151026
